FAERS Safety Report 7592929-0 (Version None)
Quarter: 2011Q3

REPORT INFORMATION
  Report Type: 
  Country: None (occurrence: None)
  Receive Date: 20110706
  Receipt Date: 20110627
  Transmission Date: 20111222
  Serious: Yes (Hospitalization)
  Sender: FDA-Public Use
  Company Number: FR-ROCHE-759027

PATIENT
  Sex: Male
  Weight: 75 kg

DRUGS (14)
  1. ATORVASTATIN CALCIUM [Concomitant]
     Dates: start: 20110118
  2. VALACYCLOVIR [Concomitant]
     Dates: start: 20101225, end: 20110506
  3. MYCOPHENOLATE MEFETIL [Suspect]
     Route: 048
     Dates: start: 20101218
  4. PREDNISONE [Suspect]
     Route: 048
     Dates: start: 20101219
  5. AMLODIPINE [Concomitant]
     Dates: start: 20100114, end: 20110120
  6. AMLODIPINE [Concomitant]
     Dates: start: 20110123
  7. MYCOPHENOLATE MEFETIL [Suspect]
     Dosage: DOSE REDUCED
     Route: 048
     Dates: start: 20110507
  8. CYCLOSPORINE [Suspect]
     Dosage: EVERYDAY
     Route: 048
     Dates: start: 20110120
  9. OROCAL [Concomitant]
     Dates: start: 20101221
  10. CYCLOSPORINE [Suspect]
     Dosage: FREQUENCY: EVERYDAY
     Route: 048
     Dates: start: 20101220
  11. BACTRIM [Concomitant]
     Dates: start: 20101219, end: 20110506
  12. MYCOPHENOLATE MEFETIL [Suspect]
     Route: 048
  13. PREDNISONE [Suspect]
     Dosage: DOSE REDUCED
     Route: 048
     Dates: start: 20110520
  14. CYCLOSPORINE [Suspect]
     Route: 048

REACTIONS (4)
  - BLOOD CREATININE INCREASED [None]
  - POSTRENAL FAILURE [None]
  - LYMPHOCELE [None]
  - RENAL LYMPHOCELE [None]
